FAERS Safety Report 9880712 (Version 1)
Quarter: 2014Q1

REPORT INFORMATION
  Report Type: Spontaneous
  Country: US (occurrence: US)
  Receive Date: 20140207
  Receipt Date: 20140207
  Transmission Date: 20141002
  Serious: No
  Sender: FDA-Public Use
  Company Number: US-ELI_LILLY_AND_COMPANY-US201402001720

PATIENT
  Age: 78 Year
  Sex: Male

DRUGS (1)
  1. CIALIS [Suspect]
     Indication: PRODUCT USED FOR UNKNOWN INDICATION
     Dosage: 5 MG, QD
     Route: 065

REACTIONS (2)
  - Vision blurred [Unknown]
  - Therapeutic response unexpected [Unknown]
